FAERS Safety Report 8523422 (Version 2)
Quarter: 2012Q4

REPORT INFORMATION
  Report Type: 
  Country: ES (occurrence: ES)
  Receive Date: 20120420
  Receipt Date: 20121129
  Transmission Date: 20130627
  Serious: Yes (Hospitalization, Other)
  Sender: FDA-Public Use
  Company Number: ES-AMGEN-ESPSP2011054450

PATIENT
  Age: 32 Year
  Sex: Female
  Weight: 78.96 kg

DRUGS (20)
  1. MIMPARA [Suspect]
     Indication: HYPERPARATHYROIDISM SECONDARY
     Dosage: 30 mg, qd
     Route: 048
     Dates: start: 20100329, end: 20101105
  2. MIMPARA [Suspect]
     Dosage: 15 mg, qd
     Route: 048
     Dates: start: 20101105, end: 20101123
  3. ERYTHROPOIETIN [Concomitant]
     Indication: ANAEMIA
     Dosage: 18000 IU, qwk
     Dates: start: 201011
  4. ERYTHROPOIETIN [Concomitant]
     Dosage: 30000 IU, qwk
     Dates: start: 201103
  5. ERYTHROPOIETIN [Concomitant]
     Dosage: 42000 IU, qwk
     Dates: start: 201103
  6. FOLIC ACID W/VITAMIN B NOS [Concomitant]
     Dosage: 5 mg, qd
     Route: 048
     Dates: start: 20100915, end: 20110722
  7. IODINE [Concomitant]
     Dosage: 200 mg, qd
     Route: 048
     Dates: start: 20101117, end: 20110627
  8. LOSARTAN [Concomitant]
     Dosage: UNK
  9. ATORVASTATIN [Concomitant]
  10. DOXAZOSIN [Concomitant]
     Indication: HYPERTENSION
     Dosage: UNK
  11. ATENOLOL [Concomitant]
     Indication: HYPERTENSION
     Dosage: UNK
  12. ENOXAPARIN [Concomitant]
     Indication: DIALYSIS
     Dosage: 20 mg, prn
     Route: 042
  13. ALMAGATE [Concomitant]
     Dosage: UNK
  14. OMEPRAZOLE [Concomitant]
     Dosage: UNK
  15. CALCIUM ACETATE [Concomitant]
     Dosage: UNK
  16. VITAMIN C                          /00008001/ [Concomitant]
     Dosage: UNK UNK, qd
  17. CARNITINE [Concomitant]
     Dosage: UNK UNK, 3 times/wk
  18. DIAZEPAM [Concomitant]
     Dosage: UNK
  19. HEPARIN SODIUM [Concomitant]
     Indication: DIALYSIS
     Dosage: 15 mg, qh
  20. HEPARIN SODIUM [Concomitant]
     Dosage: 5 mg, qh

REACTIONS (10)
  - Placenta praevia [Unknown]
  - Placenta praevia haemorrhage [Unknown]
  - Gestational hypertension [Unknown]
  - Hypertension [Unknown]
  - Cardiac failure [Unknown]
  - Premature delivery [Recovered/Resolved]
  - Haemoglobin decreased [Unknown]
  - Platelet count decreased [Unknown]
  - Blood lactate dehydrogenase increased [Unknown]
  - Transaminases increased [Unknown]
